FAERS Safety Report 21409076 (Version 2)
Quarter: 2024Q4

REPORT INFORMATION
  Report Type: Spontaneous
  Country: US (occurrence: US)
  Receive Date: 20221004
  Receipt Date: 20241001
  Transmission Date: 20250115
  Serious: No
  Sender: SANOFI AVENTIS
  Company Number: US-SA-SAC20221003000866

PATIENT
  Age: 43 Year
  Sex: Female

DRUGS (3)
  1. DUPIXENT [Suspect]
     Active Substance: DUPILUMAB
     Indication: Xerosis
     Dosage: 300 MG, QOW
     Route: 058
     Dates: start: 20190425
  2. DUPIXENT [Suspect]
     Active Substance: DUPILUMAB
     Indication: Dermatitis
  3. DUPIXENT [Suspect]
     Active Substance: DUPILUMAB
     Indication: Dry skin

REACTIONS (2)
  - Dry skin [Unknown]
  - Product use in unapproved indication [Unknown]

NARRATIVE: CASE EVENT DATE: 20190425
